FAERS Safety Report 4408481-4 (Version None)
Quarter: 2004Q2

REPORT INFORMATION
  Report Type: 
  Country: None (occurrence: None)
  Receive Date: 20040616
  Receipt Date: 20020604
  Transmission Date: 20050107
  Serious: Yes (Hospitalization)
  Sender: FDA-Public Use
  Company Number: WSDF_00412

PATIENT
  Age: 78 Year
  Sex: Male

DRUGS (4)
  1. WINRHO SDF [Suspect]
     Indication: IDIOPATHIC THROMBOCYTOPENIC PURPURA
     Dates: start: 20040501, end: 20040501
  2. DANAZOL [Concomitant]
  3. .. [Suspect]
  4. .. [Suspect]

REACTIONS (3)
  - BACTERIAL INFECTION [None]
  - FEELING ABNORMAL [None]
  - ILL-DEFINED DISORDER [None]
